FAERS Safety Report 12805033 (Version 1)
Quarter: 2016Q4

REPORT INFORMATION
  Report Type: Spontaneous
  Country: US (occurrence: US)
  Receive Date: 20161004
  Receipt Date: 20161004
  Transmission Date: 20170207
  Serious: No
  Sender: FDA-Public Use
  Company Number: US-ASTRAZENECA-2016SE99820

PATIENT
  Age: 17811 Day
  Sex: Male

DRUGS (27)
  1. CELEBREX [Concomitant]
     Active Substance: CELECOXIB
  2. CYANOCOBALAMIN. [Concomitant]
     Active Substance: CYANOCOBALAMIN
  3. SAVELLA [Concomitant]
     Active Substance: MILNACIPRAN HYDROCHLORIDE
  4. NEURONTIN [Concomitant]
     Active Substance: GABAPENTIN
  5. ZANAFLEX [Concomitant]
     Active Substance: TIZANIDINE HYDROCHLORIDE
  6. FLURAZEPAM HCL [Concomitant]
     Active Substance: FLURAZEPAM HYDROCHLORIDE
  7. TRANSDERM [Concomitant]
  8. NEXIUM [Suspect]
     Active Substance: ESOMEPRAZOLE MAGNESIUM
     Route: 048
  9. CRESTOR [Suspect]
     Active Substance: ROSUVASTATIN CALCIUM
     Route: 048
  10. INVOKANA [Concomitant]
     Active Substance: CANAGLIFLOZIN
     Indication: DIABETES MELLITUS
  11. JANUVIA [Concomitant]
     Active Substance: SITAGLIPTIN PHOSPHATE
     Indication: DIABETES MELLITUS
  12. LIDODERM [Concomitant]
     Active Substance: LIDOCAINE
     Indication: PAIN
  13. RAMIPRIL. [Concomitant]
     Active Substance: RAMIPRIL
     Indication: BLOOD PRESSURE ABNORMAL
  14. ANDROGEL [Concomitant]
     Active Substance: TESTOSTERONE
  15. VICOPROFEN [Concomitant]
     Active Substance: HYDROCODONE BITARTRATE\IBUPROFEN
  16. MIRALAX [Concomitant]
     Active Substance: POLYETHYLENE GLYCOL 3350
     Indication: CONSTIPATION
  17. BUPROPION HCL [Concomitant]
     Active Substance: BUPROPION HYDROCHLORIDE
  18. FLORAJEN 3 [Concomitant]
     Active Substance: PROBIOTICS NOS
  19. MULTIVITAMINS [Concomitant]
     Active Substance: VITAMINS
  20. VITAMIN D3 [Concomitant]
     Active Substance: CHOLECALCIFEROL
  21. VIAGRA [Concomitant]
     Active Substance: SILDENAFIL CITRATE
  22. LYRICA [Concomitant]
     Active Substance: PREGABALIN
  23. BUTRANS [Concomitant]
     Active Substance: BUPRENORPHINE
  24. LINZESS [Concomitant]
     Active Substance: LINACLOTIDE
  25. OSCAL [Concomitant]
     Active Substance: CALCIUM CARBONATE
  26. PROVIGIL [Concomitant]
     Active Substance: MODAFINIL
  27. MAGNESIUM [Concomitant]
     Active Substance: MAGNESIUM

REACTIONS (2)
  - Muscle atrophy [Unknown]
  - Drug hypersensitivity [Unknown]

NARRATIVE: CASE EVENT DATE: 20130308
